FAERS Safety Report 24678247 (Version 1)
Quarter: 2024Q4

REPORT INFORMATION
  Report Type: Spontaneous
  Country: GB (occurrence: GB)
  Receive Date: 20241129
  Receipt Date: 20241129
  Transmission Date: 20250115
  Serious: Yes (Other)
  Sender: ASTELLAS
  Company Number: None

PATIENT
  Sex: Male

DRUGS (2)
  1. XTANDI [Suspect]
     Active Substance: ENZALUTAMIDE
     Indication: Product used for unknown indication
     Dosage: 160 MG PER DAY DOSE
     Route: 065
  2. XTANDI [Suspect]
     Active Substance: ENZALUTAMIDE
     Dosage: 80 MG DAILY
     Route: 065

REACTIONS (3)
  - Depression [Unknown]
  - Nausea [Unknown]
  - Decreased appetite [Unknown]
